FAERS Safety Report 19662145 (Version 1)
Quarter: 2021Q3

REPORT INFORMATION
  Report Type: Spontaneous
  Country: CA (occurrence: CA)
  Receive Date: 20210805
  Receipt Date: 20210805
  Transmission Date: 20211014
  Serious: Yes (Other)
  Sender: FDA-Public Use
  Company Number: CA-SA-2021SA250996

PATIENT
  Age: 42 Year
  Sex: Female
  Weight: 81 kg

DRUGS (27)
  1. IBUPROFEN. [Concomitant]
     Active Substance: IBUPROFEN
     Indication: BODY TEMPERATURE INCREASED
  2. TYLENOL [Concomitant]
     Active Substance: ACETAMINOPHEN
     Indication: PAIN
  3. PARACETAMOL [Suspect]
     Active Substance: ACETAMINOPHEN
     Indication: PAIN
  4. CIMZIA [Suspect]
     Active Substance: CERTOLIZUMAB PEGOL
  5. OXYCODONE TEREPHTHALATE [Suspect]
     Active Substance: OXYCODONE TEREPHTHALATE
  6. SIMPONI [Suspect]
     Active Substance: GOLIMUMAB
  7. ENBREL [Suspect]
     Active Substance: ETANERCEPT
  8. HYDROXYCHLOROQUINE [Concomitant]
     Active Substance: HYDROXYCHLOROQUINE
  9. PANTOPAC [Concomitant]
     Active Substance: AMOXICILLIN\CLARITHROMYCIN\PANTOPRAZOLE
  10. PARACETAMOL [Suspect]
     Active Substance: ACETAMINOPHEN
     Indication: BODY TEMPERATURE INCREASED
  11. METHOTREXATE. [Suspect]
     Active Substance: METHOTREXATE
  12. TYLENOL [Concomitant]
     Active Substance: ACETAMINOPHEN
     Indication: BODY TEMPERATURE INCREASED
  13. CHLORAPREP [Suspect]
     Active Substance: CHLORHEXIDINE GLUCONATE\ISOPROPYL ALCOHOL
  14. CHOLECALCIFEROL [Concomitant]
     Active Substance: CHOLECALCIFEROL
  15. VITAMIN E NOS [Concomitant]
     Active Substance: .ALPHA.-TOCOPHEROL
  16. ARAVA [Suspect]
     Active Substance: LEFLUNOMIDE
  17. ACTEMRA [Suspect]
     Active Substance: TOCILIZUMAB
  18. LEFLUNOMIDE. [Suspect]
     Active Substance: LEFLUNOMIDE
  19. ORENCIA [Suspect]
     Active Substance: ABATACEPT
  20. PANTOPRAZOLE [Concomitant]
     Active Substance: PANTOPRAZOLE
  21. REACTINE [CETIRIZINE HYDROCHLORIDE] [Concomitant]
     Active Substance: CETIRIZINE HYDROCHLORIDE
  22. OMEGA?3 NOS [Concomitant]
     Active Substance: OMEGA-3 FATTY ACIDS
  23. OXYCODONE [Suspect]
     Active Substance: OXYCODONE
  24. PREDNISONE. [Concomitant]
     Active Substance: PREDNISONE
  25. VENTOLIN HFA [Concomitant]
     Active Substance: ALBUTEROL SULFATE
  26. VITAMINAS C [Concomitant]
     Active Substance: ASCORBIC ACID
  27. ZOPICLONE [Concomitant]
     Active Substance: ZOPICLONE

REACTIONS (22)
  - Insomnia [Unknown]
  - Muscle spasticity [Unknown]
  - Night sweats [Unknown]
  - Body temperature increased [Unknown]
  - Respiratory disorder [Unknown]
  - Pain [Unknown]
  - Pruritus [Unknown]
  - Back pain [Unknown]
  - Joint swelling [Unknown]
  - Sinusitis [Unknown]
  - Asthenia [Unknown]
  - Urticaria [Unknown]
  - Ear pain [Unknown]
  - Headache [Unknown]
  - Diarrhoea [Unknown]
  - Rash [Unknown]
  - Abdominal pain upper [Unknown]
  - Vomiting [Unknown]
  - Off label use [Unknown]
  - Lower respiratory tract infection [Unknown]
  - Peripheral swelling [Unknown]
  - Incorrect route of product administration [Unknown]
